FAERS Safety Report 16282416 (Version 1)
Quarter: 2019Q2

REPORT INFORMATION
  Report Type: Other
  Country: PL (occurrence: PL)
  Receive Date: 20190507
  Receipt Date: 20190507
  Transmission Date: 20190711
  Serious: Yes (Life-Threatening)
  Sender: FDA-Public Use
  Company Number: PL-SERVIER-S16012085

PATIENT

DRUGS (1)
  1. ONCASPAR [Suspect]
     Active Substance: PEGASPARGASE
     Indication: CHRONIC LYMPHOCYTIC LEUKAEMIA
     Dosage: 1550 MG
     Route: 042

REACTIONS (4)
  - Pruritus [Recovered/Resolved]
  - Vomiting [Recovered/Resolved]
  - Lip oedema [Recovered/Resolved]
  - Abdominal pain [Recovered/Resolved]

NARRATIVE: CASE EVENT DATE: 20160829
